FAERS Safety Report 5817943-4 (Version None)
Quarter: 2008Q3

REPORT INFORMATION
  Report Type: 
  Country: None (occurrence: None)
  Receive Date: 20080722
  Receipt Date: 20070806
  Transmission Date: 20090109
  Serious: No
  Sender: FDA-Public Use
  Company Number: US-BAYER-US-2007-028370

PATIENT
  Age: 58 Year
  Sex: Female

DRUGS (4)
  1. MAGNEVIST [Suspect]
     Dosage: UNIT DOSE: 30 ML
     Route: 042
     Dates: start: 20070611, end: 20070611
  2. PREDNISONE TAB [Concomitant]
     Dates: start: 20070610, end: 20070611
  3. LIPITOR [Concomitant]
  4. ASPIRIN [Concomitant]

REACTIONS (1)
  - ORAL PRURITUS [None]
